FAERS Safety Report 8687657 (Version 4)
Quarter: 2012Q4

REPORT INFORMATION
  Report Type: Report from Study
  Country: GB (occurrence: GB)
  Receive Date: 20120727
  Receipt Date: 20121129
  Transmission Date: 20130627
  Serious: Yes (Hospitalization)
  Sender: FDA-Public Use
  Company Number: GB-PFIZER INC-2012137106

PATIENT
  Age: 60 Year
  Sex: Male

DRUGS (8)
  1. EPLERENONE [Suspect]
     Indication: ACUTE MYOCARDIAL INFARCTION
     Dosage: 25 mg, 1x/day
     Route: 048
     Dates: start: 20110915, end: 20110915
  2. EPLERENONE [Suspect]
     Dosage: 25 mg, 2x/day
     Route: 048
     Dates: start: 20110916, end: 20120927
  3. ATORVASTATIN [Suspect]
     Dosage: 80 mg, 1x/day
     Route: 048
     Dates: start: 20110914
  4. CARDICOR [Suspect]
     Indication: SECONDARY PREVENTION
     Dosage: 1.25 mg, 1x/day
     Route: 048
     Dates: start: 20110914, end: 20120507
  5. ASPIRIN [Concomitant]
     Indication: PROPHYLAXIS
     Dosage: 75 mg, 1x/day
     Route: 048
     Dates: start: 20110914
  6. PRASUGREL [Concomitant]
     Indication: PROPHYLAXIS
     Dosage: 10 mg, 1x/day
     Route: 048
     Dates: start: 20110914
  7. RAMIPRIL [Concomitant]
     Indication: SECONDARY PREVENTION
     Dosage: 1.25 mg, 1x/day
     Route: 048
     Dates: start: 20110914
  8. GTN [Concomitant]
     Indication: ANGINA PECTORIS
     Dosage: 400 ug, as needed
     Route: 060
     Dates: start: 20110914

REACTIONS (14)
  - Bradycardia [Recovered/Resolved]
  - Musculoskeletal pain [Recovered/Resolved]
  - Hyperhidrosis [Recovering/Resolving]
  - Dizziness [Recovering/Resolving]
  - Dyspnoea [Not Recovered/Not Resolved]
  - Nausea [Recovering/Resolving]
  - Confusional state [Not Recovered/Not Resolved]
  - Lethargy [Unknown]
  - Palpitations [Recovering/Resolving]
  - Syncope [Not Recovered/Not Resolved]
  - Headache [Not Recovered/Not Resolved]
  - Photophobia [Recovered/Resolved]
  - Vertigo [Not Recovered/Not Resolved]
  - Malaise [Not Recovered/Not Resolved]
